FAERS Safety Report 14962559 (Version 2)
Quarter: 2018Q2

REPORT INFORMATION
  Report Type: Spontaneous
  Country: US (occurrence: US)
  Receive Date: 20180601
  Receipt Date: 20180621
  Transmission Date: 20180711
  Serious: Yes (Other)
  Sender: FDA-Public Use
  Company Number: US-LUPIN (EUROPE) LIMITED-2018-04009

PATIENT
  Age: 2 Year
  Sex: Male
  Weight: 8.16 kg

DRUGS (1)
  1. CEPHALEXIN FOR ORAL SUSPENSION USP 250 MG/5 ML [Suspect]
     Active Substance: CEPHALEXIN
     Indication: IMPETIGO
     Dosage: 250 MG/5 ML, TID
     Route: 048
     Dates: start: 20180517

REACTIONS (1)
  - Seizure like phenomena [Not Recovered/Not Resolved]

NARRATIVE: CASE EVENT DATE: 20180518
